FAERS Safety Report 24308122 (Version 1)
Quarter: 2024Q3

REPORT INFORMATION
  Report Type: Other
  Country: US (occurrence: US)
  Receive Date: 20240911
  Receipt Date: 20240911
  Transmission Date: 20241017
  Serious: No
  Sender: SIGMA TAU
  Company Number: US-LEADIANT BIOSCIENCES, INC.-2024LBI000061

PATIENT
  Sex: Male

DRUGS (2)
  1. MATULANE [Suspect]
     Active Substance: PROCARBAZINE HYDROCHLORIDE
     Indication: Brain neoplasm malignant
     Dosage: 50 MILLIGRAMS, 3 CAPSULES (150MG TOTAL) DAILY ON DAYS 8 TO 21 OF EACH 42 DAY CYCLE
     Dates: start: 20230719
  2. ONDANSETRON [Concomitant]
     Active Substance: ONDANSETRON

REACTIONS (8)
  - Constipation [Unknown]
  - Diarrhoea [Unknown]
  - Thrombocytopenia [Unknown]
  - Neutropenia [Unknown]
  - Leukopenia [Unknown]
  - Nausea [Recovering/Resolving]
  - Fatigue [Unknown]
  - Dysphonia [Unknown]
